FAERS Safety Report 18935190 (Version 2)
Quarter: 2021Q1

REPORT INFORMATION
  Report Type: Spontaneous
  Country: LK (occurrence: LK)
  Receive Date: 20210224
  Receipt Date: 20210312
  Transmission Date: 20210420
  Serious: Yes (Hospitalization, Other)
  Sender: FDA-Public Use
  Company Number: LK-ACCORD-218090

PATIENT
  Age: 39 Year
  Sex: Male

DRUGS (10)
  1. AMITRIPTYLINE [Suspect]
     Active Substance: AMITRIPTYLINE
     Dosage: TAKEN AT NIGHT (GRADUALLY INCREASED)
     Route: 048
  2. AMITRIPTYLINE [Suspect]
     Active Substance: AMITRIPTYLINE
     Dosage: 75 ? 300  MG
  3. AMITRIPTYLINE [Suspect]
     Active Substance: AMITRIPTYLINE
     Dosage: TAKEN AT NIGHT (GRADUALLY INCREASED)
     Route: 048
  4. AMITRIPTYLINE [Suspect]
     Active Substance: AMITRIPTYLINE
     Dosage: IN DAYTIMES
     Route: 048
  5. AMITRIPTYLINE [Suspect]
     Active Substance: AMITRIPTYLINE
     Route: 048
  6. AMITRIPTYLINE [Suspect]
     Active Substance: AMITRIPTYLINE
     Dosage: TAKEN AT NIGHT (GRADUALLY INCREASED)
     Route: 048
  7. AMITRIPTYLINE [Suspect]
     Active Substance: AMITRIPTYLINE
     Dosage: TAKEN AT NIGHT (GRADUALLY INCREASED)
     Route: 048
  8. AMITRIPTYLINE [Suspect]
     Active Substance: AMITRIPTYLINE
     Dosage: IN DAYTIMES
     Route: 048
  9. AMITRIPTYLINE [Suspect]
     Active Substance: AMITRIPTYLINE
     Dosage: TAKEN AT NIGHT
     Route: 048
  10. AMITRIPTYLINE [Suspect]
     Active Substance: AMITRIPTYLINE
     Dosage: TAKEN AT NIGHT (GRADUALLY INCREASED)
     Route: 048

REACTIONS (12)
  - Loss of consciousness [Recovered/Resolved]
  - Seizure [Recovered/Resolved]
  - Dysphonia [Recovered/Resolved]
  - Intentional product misuse [Unknown]
  - Drug dependence [Recovered/Resolved]
  - Mania [Recovered/Resolved]
  - Overdose [Unknown]
  - Restlessness [Recovered/Resolved]
  - Delirium [Recovered/Resolved]
  - Constipation [Recovered/Resolved]
  - Toxicity to various agents [Unknown]
  - Performance status decreased [Recovered/Resolved]
